FAERS Safety Report 4339913-8 (Version None)
Quarter: 2004Q2

REPORT INFORMATION
  Report Type: 
  Country: None (occurrence: None)
  Receive Date: 20040414
  Receipt Date: 20040414
  Transmission Date: 20050107
  Serious: No
  Sender: FDA-Public Use
  Company Number: None

PATIENT
  Age: 65 Year
  Sex: Female
  Weight: 136.09 kg

DRUGS (5)
  1. TEQUIN [Suspect]
     Indication: CELLULITIS
     Dosage: 400 MG IV DAILY
     Route: 042
     Dates: start: 20030107
  2. TEQUIN [Suspect]
     Indication: PHLEBITIS
     Dosage: 400 MG IV DAILY
     Route: 042
     Dates: start: 20030107
  3. TEQUIN [Suspect]
     Indication: CELLULITIS
     Dosage: 400 MG IV DAILY
     Route: 042
     Dates: start: 20030109
  4. TEQUIN [Suspect]
     Indication: PHLEBITIS
     Dosage: 400 MG IV DAILY
     Route: 042
     Dates: start: 20030109
  5. TEQUIN [Suspect]
     Dosage: 400 MG IV DAILY
     Route: 042
     Dates: start: 20030110

REACTIONS (1)
  - BLOOD GLUCOSE DECREASED [None]
